FAERS Safety Report 11341672 (Version 1)
Quarter: 2015Q3

REPORT INFORMATION
  Report Type: Spontaneous
  Country: US (occurrence: None)
  Receive Date: 20150803
  Receipt Date: 20150803
  Transmission Date: 20151125
  Serious: Yes (Life-Threatening)
  Sender: FDA-Public Use
  Company Number: None

PATIENT
  Age: 43 Year
  Sex: Female
  Weight: 56.25 kg

DRUGS (6)
  1. VITAMIN D [Concomitant]
     Active Substance: CHOLECALCIFEROL
  2. METOCLOPRAMIDE. [Concomitant]
     Active Substance: METOCLOPRAMIDE
  3. ALEVE [Concomitant]
     Active Substance: NAPROXEN SODIUM
  4. INSULIN [Suspect]
     Active Substance: INSULIN NOS
  5. MINI MED PARADIGM INSULIN PUMP [Suspect]
     Active Substance: DEVICE
  6. HUMALOG [Concomitant]
     Active Substance: INSULIN LISPRO

REACTIONS (3)
  - Device battery issue [None]
  - Device malfunction [None]
  - Blood glucose increased [None]

NARRATIVE: CASE EVENT DATE: 20150801
